FAERS Safety Report 6467435-7 (Version None)
Quarter: 2009Q4

REPORT INFORMATION
  Report Type: 
  Country: None (occurrence: None)
  Receive Date: 20091202
  Receipt Date: 20091125
  Transmission Date: 20100525
  Serious: No
  Sender: FDA-Public Use
  Company Number: B0605464A

PATIENT
  Sex: Female

DRUGS (15)
  1. PAXIL [Suspect]
     Indication: DEPRESSION
     Route: 048
     Dates: start: 20090821
  2. DIGOXIN [Concomitant]
     Indication: CARDIAC FAILURE
     Route: 065
  3. OLMETEC [Concomitant]
     Route: 048
  4. SUNRYTHM [Concomitant]
     Route: 065
  5. BASEN [Concomitant]
     Route: 048
  6. ARTIST [Concomitant]
     Route: 048
  7. TANATRIL [Concomitant]
     Route: 048
  8. PLAVIX [Concomitant]
     Route: 048
  9. PLETAL [Concomitant]
     Route: 048
  10. DIHYDROERGOTAMINE MESYLATE [Concomitant]
     Route: 048
  11. GASTER [Concomitant]
     Route: 048
  12. METHYCOBAL [Concomitant]
     Route: 065
  13. ASPARA K [Concomitant]
     Route: 048
  14. BENECID [Concomitant]
     Route: 048
     Dates: start: 20091117
  15. DEXAMETHASONE TAB [Concomitant]
     Route: 065

REACTIONS (2)
  - DRUG WITHDRAWAL SYNDROME [None]
  - TREMOR [None]
